FAERS Safety Report 20809621 (Version 1)
Quarter: 2022Q2

REPORT INFORMATION
  Report Type: Spontaneous
  Country: US (occurrence: None)
  Receive Date: 20220510
  Receipt Date: 20220510
  Transmission Date: 20220721
  Serious: Yes (Hospitalization)
  Sender: FDA-Public Use
  Company Number: None

PATIENT
  Age: 31 Year
  Sex: Female
  Weight: 112.5 kg

DRUGS (16)
  1. PAXLOVID [Suspect]
     Active Substance: NIRMATRELVIR\RITONAVIR
     Indication: COVID-19 prophylaxis
     Dosage: OTHER QUANTITY : 2 TABLET(S);?FREQUENCY : TWICE A DAY;?
     Route: 048
     Dates: start: 20220504, end: 20220506
  2. BASAGLAR [Concomitant]
     Active Substance: INSULIN GLARGINE
  3. TRULICITY [Concomitant]
     Active Substance: DULAGLUTIDE
  4. METFORMIN [Concomitant]
     Active Substance: METFORMIN HYDROCHLORIDE
  5. LYUMJEV [Concomitant]
     Active Substance: INSULIN LISPRO-AABC
  6. SIMVASTATIN [Concomitant]
     Active Substance: SIMVASTATIN
  7. FLUTICASONE [Concomitant]
     Active Substance: FLUTICASONE
  8. LORATADINE [Concomitant]
     Active Substance: LORATADINE
  9. MONTELUKAST [Concomitant]
     Active Substance: MONTELUKAST SODIUM
  10. ALBUTEROL [Concomitant]
     Active Substance: ALBUTEROL
  11. MELOXICAM [Concomitant]
     Active Substance: MELOXICAM
  12. Glucosamine Chondroitin [Concomitant]
  13. VOLTAREN [Concomitant]
     Active Substance: DICLOFENAC SODIUM
  14. IBUPROFEN [Concomitant]
     Active Substance: IBUPROFEN
  15. TYLENOL [Concomitant]
     Active Substance: ACETAMINOPHEN
  16. Freestyle libre 2 sensor estrogenol ring [Concomitant]

REACTIONS (12)
  - Dizziness [None]
  - Chest pain [None]
  - Therapy interrupted [None]
  - Paraesthesia [None]
  - Dyspnoea [None]
  - Heart rate irregular [None]
  - Adverse drug reaction [None]
  - Chest discomfort [None]
  - Palpitations [None]
  - Feeling of body temperature change [None]
  - Heart rate increased [None]
  - Arrhythmia [None]

NARRATIVE: CASE EVENT DATE: 20220506
